FAERS Safety Report 7801550-8 (Version None)
Quarter: 2011Q4

REPORT INFORMATION
  Report Type: 
  Country: None (occurrence: None)
  Receive Date: 20111007
  Receipt Date: 20110929
  Transmission Date: 20120403
  Serious: Yes (Other)
  Sender: FDA-Public Use
  Company Number: US-JNJFOC-20110611379

PATIENT
  Sex: Female
  Weight: 92.99 kg

DRUGS (1)
  1. SIMPONI [Suspect]
     Indication: ANKYLOSING SPONDYLITIS
     Route: 058
     Dates: start: 20100501

REACTIONS (10)
  - ABNORMAL LOSS OF WEIGHT [None]
  - FIBROMYALGIA [None]
  - HYPOTHYROIDISM [None]
  - ANXIETY [None]
  - DRUG DOSE OMISSION [None]
  - DEVICE LEAKAGE [None]
  - BLOOD PRESSURE INCREASED [None]
  - INJECTION SITE PAIN [None]
  - WEIGHT INCREASED [None]
  - BLOOD GLUCOSE FLUCTUATION [None]
